FAERS Safety Report 5564615-X (Version None)
Quarter: 2007Q4

REPORT INFORMATION
  Report Type: 
  Country: None (occurrence: None)
  Receive Date: 20071212
  Receipt Date: 20071128
  Transmission Date: 20080405
  Serious: Yes (Other)
  Sender: FDA-Public Use
  Company Number: US-1164654

PATIENT

DRUGS (1)
  1. MIOSTAT [Suspect]
     Dosage: IINTRAOCULAR)
     Route: 031

REACTIONS (1)
  - DRUG INEFFECTIVE [None]
